FAERS Safety Report 16347525 (Version 1)
Quarter: 2019Q3

REPORT INFORMATION
  Report Type: Spontaneous
  Country: US (occurrence: US)
  Receive Date: 20190522
  Receipt Date: 20190522
  Transmission Date: 20191004
  Serious: Yes (Hospitalization)
  Sender: FDA-Public Use
  Company Number: None

PATIENT
  Sex: Male

DRUGS (19)
  1. ASPIRIN. [Concomitant]
     Active Substance: ASPIRIN
  2. PRAVASTATIN. [Concomitant]
     Active Substance: PRAVASTATIN
  3. LACTULOSE. [Concomitant]
     Active Substance: LACTULOSE
  4. FAMOTIDINE. [Concomitant]
     Active Substance: FAMOTIDINE
  5. GENGRAF [Suspect]
     Active Substance: CYCLOSPORINE
     Indication: RENAL TRANSPLANT
     Route: 048
     Dates: start: 20120911
  6. PREDNISONE. [Concomitant]
     Active Substance: PREDNISONE
  7. CALCITRIOL. [Concomitant]
     Active Substance: CALCITRIOL
  8. FAMOTIDINE. [Concomitant]
     Active Substance: FAMOTIDINE
  9. OXYCODONE AND ACETAMINOPHEN [Concomitant]
     Active Substance: ACETAMINOPHEN\OXYCODONE HYDROCHLORIDE
  10. VIT D [Concomitant]
     Active Substance: VITAMIN D NOS
  11. MULTI VIT [Concomitant]
     Active Substance: VITAMINS
  12. VIT B-12 [Concomitant]
  13. ALLOPURINOL. [Concomitant]
     Active Substance: ALLOPURINOL
  14. MYFORTIC [Suspect]
     Active Substance: MYCOPHENOLATE SODIUM
     Indication: RENAL TRANSPLANT
     Route: 048
     Dates: start: 20120911
  15. CLOPIDOGREL [Concomitant]
     Active Substance: CLOPIDOGREL BISULFATE
  16. FISH OIL [Concomitant]
     Active Substance: FISH OIL
  17. TAMSULOSIN [Concomitant]
     Active Substance: TAMSULOSIN
  18. OXYCODONE [Concomitant]
     Active Substance: OXYCODONE
  19. CARVEDILOL. [Concomitant]
     Active Substance: CARVEDILOL

REACTIONS (2)
  - Fall [None]
  - Cerebrovascular accident [None]
